FAERS Safety Report 15068238 (Version 2)
Quarter: 2018Q3

REPORT INFORMATION
  Report Type: Spontaneous
  Country: US (occurrence: US)
  Receive Date: 20180626
  Receipt Date: 20180709
  Transmission Date: 20181010
  Serious: Yes (Other)
  Sender: FDA-Public Use
  Company Number: US-TEVA-2018-US-913791

PATIENT
  Age: 32 Year
  Sex: Male

DRUGS (3)
  1. LOPERAMIDE [Suspect]
     Active Substance: LOPERAMIDE
     Indication: MOOD ALTERED
     Dosage: RECEIVED 360MG EVERY OTHER DAY FOR SEVERAL YEARS
     Route: 065
  2. PERCOCET [Concomitant]
     Active Substance: ACETAMINOPHEN\OXYCODONE HYDROCHLORIDE
     Indication: PROCEDURAL PAIN
     Route: 065
     Dates: start: 2008
  3. MS CONTIN [Concomitant]
     Active Substance: MORPHINE SULFATE
     Dosage: HIGH DOSES
     Route: 065

REACTIONS (7)
  - Overdose [Recovered/Resolved]
  - QRS axis abnormal [Recovered/Resolved]
  - Constipation [Recovered/Resolved]
  - Drug dependence [Recovered/Resolved]
  - Electrocardiogram QRS complex prolonged [Recovered/Resolved]
  - Drug abuse [Recovered/Resolved]
  - Atrioventricular block first degree [Recovered/Resolved]
